FAERS Safety Report 10670663 (Version 6)
Quarter: 2016Q1

REPORT INFORMATION
  Report Type: Spontaneous
  Country: US (occurrence: US)
  Receive Date: 20141223
  Receipt Date: 20160128
  Transmission Date: 20160525
  Serious: Yes (Hospitalization, Congenital Anomaly, Other)
  Sender: FDA-Public Use
  Company Number: US-APOTEX-2014AP006260

PATIENT
  Age: 0 Day
  Sex: Male

DRUGS (3)
  1. PRENATAL PLUS IRON [Concomitant]
     Active Substance: .ALPHA.-TOCOPHEROL ACETATE, DL-\.BETA.-CAROTENE\ASCORBIC ACID\CALCIUM CARBONATE\CHOLECALCIFEROL\CUPRIC OXIDE\CYANOCOBALAMIN\FERROUS FUMARATE\FOLIC ACID\NIACINAMIDE\PYRIDOXINE HYDROCHLORIDE\RIBOFLAVIN\THIAMINE MONONITRATE\VITAMIN A ACETATE\ZINC OXIDE
     Indication: PRODUCT USED FOR UNKNOWN INDICATION
     Dosage: UNK
     Route: 064
     Dates: start: 2000
  2. PAXIL [Suspect]
     Active Substance: PAROXETINE HYDROCHLORIDE
     Dosage: 40 MG, UNK
     Route: 064
     Dates: start: 20001113, end: 20001213
  3. PAXIL [Suspect]
     Active Substance: PAROXETINE HYDROCHLORIDE
     Indication: PRODUCT USED FOR UNKNOWN INDICATION
     Dosage: 20 MG, QD
     Route: 064
     Dates: start: 199806, end: 2010

REACTIONS (14)
  - Attention deficit/hyperactivity disorder [Unknown]
  - Transient tachypnoea of the newborn [Unknown]
  - Convulsion neonatal [Unknown]
  - Haemorrhage intracranial [Unknown]
  - Body temperature fluctuation [Unknown]
  - Jaundice [Unknown]
  - Gastrooesophageal reflux disease [Unknown]
  - Skull fracture [Unknown]
  - Foetal exposure during pregnancy [Unknown]
  - Developmental delay [Unknown]
  - Drug withdrawal syndrome neonatal [Unknown]
  - Weight gain poor [Unknown]
  - Low birth weight baby [Unknown]
  - Talipes [Unknown]

NARRATIVE: CASE EVENT DATE: 20010510
